FAERS Safety Report 11291731 (Version 1)
Quarter: 2015Q3

REPORT INFORMATION
  Report Type: Spontaneous
  Country: US (occurrence: None)
  Receive Date: 20150721
  Receipt Date: 20150721
  Transmission Date: 20151125
  Serious: No
  Sender: FDA-Public Use
  Company Number: None

PATIENT
  Age: 71 Year
  Sex: Female
  Weight: 72.58 kg

DRUGS (1)
  1. LATANOPROST 0.005% GREENSTONE [Suspect]
     Active Substance: LATANOPROST
     Indication: GLAUCOMA
     Route: 047
     Dates: start: 20150718, end: 20150718

REACTIONS (2)
  - No reaction on previous exposure to drug [None]
  - Eye pain [None]

NARRATIVE: CASE EVENT DATE: 20150718
